FAERS Safety Report 7993411-9 (Version None)
Quarter: 2011Q4

REPORT INFORMATION
  Report Type: 
  Country: None (occurrence: None)
  Receive Date: 20111219
  Receipt Date: 20110902
  Transmission Date: 20120403
  Serious: No
  Sender: FDA-Public Use
  Company Number: US-ASTRAZENECA-2011SE36454

PATIENT
  Age: 60 Year
  Sex: Female

DRUGS (6)
  1. M.V.I. [Concomitant]
  2. ACIPHEX [Concomitant]
  3. XYZAL [Concomitant]
  4. CRESTOR [Suspect]
     Indication: HYPERCHOLESTEROLAEMIA
     Route: 048
  5. CALCIUM [Concomitant]
  6. FISH OIL [Concomitant]

REACTIONS (5)
  - GENERALISED OEDEMA [None]
  - ABDOMINAL DISTENSION [None]
  - PAIN [None]
  - JOINT SWELLING [None]
  - WEIGHT INCREASED [None]
